FAERS Safety Report 11532590 (Version 2)
Quarter: 2015Q4

REPORT INFORMATION
  Report Type: Spontaneous
  Country: US (occurrence: US)
  Receive Date: 20150921
  Receipt Date: 20151109
  Transmission Date: 20160304
  Serious: Yes (Life-Threatening, Hospitalization)
  Sender: FDA-Public Use
  Company Number: US-SA-2015SA141948

PATIENT
  Age: 76 Year
  Sex: Female

DRUGS (3)
  1. HUMALOG [Concomitant]
     Active Substance: INSULIN LISPRO
     Dosage: 7-14 UNITS AT MEALTIMES DEPENDING ON HER?BS^S.
  2. SOLOSTAR [Concomitant]
     Active Substance: DEVICE
  3. LANTUS SOLOSTAR [Suspect]
     Active Substance: INSULIN GLARGINE
     Indication: TYPE 2 DIABETES MELLITUS
     Dosage: START DATE: 7-8 YEARS DOSE:14 UNIT(S)
     Route: 065

REACTIONS (5)
  - Blood glucose decreased [Unknown]
  - Weight decreased [Unknown]
  - Clostridium difficile infection [Unknown]
  - Pancreatic cyst [Unknown]
  - Gastric disorder [Unknown]
